FAERS Safety Report 21649976 (Version 15)
Quarter: 2025Q4

REPORT INFORMATION
  Report Type: Spontaneous
  Country: US (occurrence: US)
  Receive Date: 20221128
  Receipt Date: 20251107
  Transmission Date: 20260119
  Serious: Yes (Other)
  Sender: CSL BEHRING
  Company Number: US-BEH-2022152302

PATIENT
  Age: 47 Year
  Sex: Female

DRUGS (13)
  1. HAEGARDA [Suspect]
     Active Substance: HUMAN C1-ESTERASE INHIBITOR
     Indication: Hereditary angioedema
     Dosage: 3000 IU, BIW
     Route: 058
     Dates: start: 202006
  2. HAEGARDA [Suspect]
     Active Substance: HUMAN C1-ESTERASE INHIBITOR
     Indication: Prophylaxis
     Dosage: 3000 IU, BIW
     Route: 058
     Dates: start: 20191106
  3. HAEGARDA [Suspect]
     Active Substance: HUMAN C1-ESTERASE INHIBITOR
     Dosage: 3000 IU, BIW
     Route: 058
     Dates: start: 20191105
  4. HAEGARDA [Suspect]
     Active Substance: HUMAN C1-ESTERASE INHIBITOR
     Dosage: 1 DOSAGE FORM
     Route: 065
     Dates: start: 20230617
  5. HAEGARDA [Suspect]
     Active Substance: HUMAN C1-ESTERASE INHIBITOR
     Dosage: 3000 IU, BIW
     Route: 058
     Dates: start: 201911
  6. HAEGARDA [Suspect]
     Active Substance: HUMAN C1-ESTERASE INHIBITOR
     Dosage: 1 DOSAGE FORM
     Route: 065
     Dates: start: 20230701
  7. HAEGARDA [Suspect]
     Active Substance: HUMAN C1-ESTERASE INHIBITOR
     Indication: Hereditary angioedema
     Dosage: 2000 IU, BIW
     Route: 058
     Dates: start: 202006
  8. HAEGARDA [Suspect]
     Active Substance: HUMAN C1-ESTERASE INHIBITOR
     Indication: Prophylaxis
     Dosage: 2000 IU, BIW
     Route: 058
     Dates: start: 20191106
  9. HAEGARDA [Suspect]
     Active Substance: HUMAN C1-ESTERASE INHIBITOR
     Dosage: 2000 IU, BIW
     Route: 058
     Dates: start: 20191105
  10. HAEGARDA [Suspect]
     Active Substance: HUMAN C1-ESTERASE INHIBITOR
     Dosage: 1 DOSAGE FORM
     Route: 065
     Dates: start: 20230617
  11. HAEGARDA [Suspect]
     Active Substance: HUMAN C1-ESTERASE INHIBITOR
     Dosage: 2000 IU, BIW
     Route: 058
     Dates: start: 201911
  12. HAEGARDA [Suspect]
     Active Substance: HUMAN C1-ESTERASE INHIBITOR
     Dosage: 1 DOSAGE FORM
     Route: 065
     Dates: start: 20230701
  13. ICATIBANT ACETATE [Concomitant]
     Active Substance: ICATIBANT ACETATE

REACTIONS (32)
  - Hereditary angioedema [Unknown]
  - Hereditary angioedema [Recovered/Resolved]
  - Hereditary angioedema [Unknown]
  - Hereditary angioedema [Unknown]
  - Hereditary angioedema [Recovered/Resolved]
  - Injection site abscess [Unknown]
  - Hereditary angioedema [Unknown]
  - Hereditary angioedema [Unknown]
  - Hereditary angioedema [Recovered/Resolved]
  - Hereditary angioedema [Recovered/Resolved]
  - Hereditary angioedema [Recovered/Resolved]
  - Hereditary angioedema [Unknown]
  - Hereditary angioedema [Unknown]
  - Hereditary angioedema [Unknown]
  - Hereditary angioedema [Unknown]
  - Hereditary angioedema [Unknown]
  - Hereditary angioedema [Unknown]
  - Hereditary angioedema [Recovered/Resolved]
  - Hereditary angioedema [Unknown]
  - Hereditary angioedema [Unknown]
  - Hereditary angioedema [Unknown]
  - Hereditary angioedema [Unknown]
  - Hereditary angioedema [Unknown]
  - Hereditary angioedema [Unknown]
  - Injection site swelling [Unknown]
  - Injection site erythema [Unknown]
  - Stress [Unknown]
  - Influenza [Unknown]
  - Weight increased [Unknown]
  - Product dose omission issue [Unknown]
  - Off label use [Unknown]
  - Therapy interrupted [Unknown]

NARRATIVE: CASE EVENT DATE: 20221101
